FAERS Safety Report 7564616-6 (Version None)
Quarter: 2011Q2

REPORT INFORMATION
  Report Type: 
  Country: None (occurrence: None)
  Receive Date: 20110622
  Receipt Date: 20100714
  Transmission Date: 20111010
  Serious: Yes (Other)
  Sender: FDA-Public Use
  Company Number: US-MYLANLABS-2010S1012338

PATIENT
  Age: 17 Year
  Sex: Female

DRUGS (7)
  1. CONCERTA [Concomitant]
  2. OMEGA III [Concomitant]
  3. ORAL CONTRACEPTIVE NOS [Concomitant]
  4. TRICOR [Concomitant]
  5. VITAMIN D [Concomitant]
  6. CLOZAPINE [Suspect]
     Indication: HALLUCINATION
     Dates: end: 20100701
  7. LEXAPRO [Concomitant]

REACTIONS (1)
  - GRANULOCYTOPENIA [None]
